FAERS Safety Report 18686364 (Version 1)
Quarter: 2020Q4

REPORT INFORMATION
  Report Type: Spontaneous
  Country: FR (occurrence: FR)
  Receive Date: 20201230
  Receipt Date: 20201230
  Transmission Date: 20210114
  Serious: Yes (Life-Threatening, Other)
  Sender: FDA-Public Use
  Company Number: FR-JNJFOC-20201245225

PATIENT

DRUGS (9)
  1. REMICADE [Suspect]
     Active Substance: INFLIXIMAB
     Indication: MALIGNANT MELANOMA STAGE III
     Dosage: 5 MG/KG EVERY 3 WEEKS FOR 3 DOSES
     Route: 042
  2. IPILIMUMAB [Suspect]
     Active Substance: IPILIMUMAB
     Indication: METASTATIC MALIGNANT MELANOMA
     Dosage: 3 MG/KG EVERY 3 WEEKS FOR 4 DOSES
     Route: 065
  3. IPILIMUMAB [Suspect]
     Active Substance: IPILIMUMAB
     Indication: MALIGNANT MELANOMA STAGE IV
  4. NIVOLUMAB [Suspect]
     Active Substance: NIVOLUMAB
     Indication: MALIGNANT MELANOMA STAGE IV
  5. NIVOLUMAB [Suspect]
     Active Substance: NIVOLUMAB
     Indication: METASTATIC MALIGNANT MELANOMA
     Dosage: 1 MG/KG, EVERY 3 WEEKS
     Route: 065
  6. IPILIMUMAB [Suspect]
     Active Substance: IPILIMUMAB
     Indication: MALIGNANT MELANOMA STAGE III
  7. REMICADE [Suspect]
     Active Substance: INFLIXIMAB
     Indication: MALIGNANT MELANOMA STAGE IV
     Dosage: 5 MG/KG EVERY 8 WEEKS
     Route: 042
  8. NIVOLUMAB [Suspect]
     Active Substance: NIVOLUMAB
     Indication: MALIGNANT MELANOMA STAGE III
     Dosage: 3 MG/KG OF NIVOLUMAB EVERY 2 WEEKS FOR CYCLE 5 AND BEYOND
     Route: 065
  9. REMICADE [Suspect]
     Active Substance: INFLIXIMAB
     Indication: METASTATIC MALIGNANT MELANOMA

REACTIONS (47)
  - Acute kidney injury [Unknown]
  - Erythema multiforme [Unknown]
  - Renal disorder [Unknown]
  - Lipase increased [Unknown]
  - Hiccups [Unknown]
  - Ejection fraction abnormal [Unknown]
  - Nausea [Unknown]
  - Left ventricular dysfunction [Unknown]
  - Pneumonitis [Unknown]
  - Hot flush [Unknown]
  - Tumour pain [Unknown]
  - Mediastinal disorder [Unknown]
  - Hypomagnesaemia [Unknown]
  - Ill-defined disorder [Unknown]
  - Rash maculo-papular [Unknown]
  - Pruritus [Unknown]
  - Chills [Unknown]
  - Disease progression [Unknown]
  - Infection [Unknown]
  - Pneumonia [Unknown]
  - Dysgeusia [Unknown]
  - Malaise [Unknown]
  - Aspartate aminotransferase increased [Unknown]
  - Dyspnoea [Unknown]
  - Respiratory disorder [Unknown]
  - Leukocytosis [Unknown]
  - Diarrhoea [Unknown]
  - Fatigue [Unknown]
  - Infestation [Unknown]
  - Insomnia [Unknown]
  - Hyperthyroidism [Unknown]
  - Anaemia [Unknown]
  - Back pain [Unknown]
  - Drug effective for unapproved indication [Unknown]
  - Off label use [Unknown]
  - Urinary tract disorder [Unknown]
  - Hepatobiliary disease [Unknown]
  - Cough [Unknown]
  - Oedema peripheral [Unknown]
  - Phlebitis [Unknown]
  - Pyrexia [Unknown]
  - Non-cardiac chest pain [Unknown]
  - Therapy partial responder [Unknown]
  - Gastrointestinal disorder [Unknown]
  - Skin disorder [Unknown]
  - Administration site reaction [Unknown]
  - Headache [Unknown]
